FAERS Safety Report 23663296 (Version 2)
Quarter: 2024Q2

REPORT INFORMATION
  Report Type: Spontaneous
  Country: GB (occurrence: GB)
  Receive Date: 20240322
  Receipt Date: 20240408
  Transmission Date: 20240716
  Serious: Yes (Hospitalization, Disabling, Other)
  Sender: FDA-Public Use
  Company Number: GB-CLINIGEN-GB-CLI-2024-009594

PATIENT

DRUGS (4)
  1. DEXRAZOXANE [Suspect]
     Active Substance: DEXRAZOXANE
     Indication: Administration site extravasation
     Dosage: 1000MG/M2
     Dates: start: 20231219
  2. DEXRAZOXANE [Suspect]
     Active Substance: DEXRAZOXANE
     Dosage: 1000MG/M2
     Dates: start: 20231220
  3. DEXRAZOXANE [Suspect]
     Active Substance: DEXRAZOXANE
     Dosage: 500MG/M2
     Dates: start: 20231221
  4. EPIRUBICIN [Concomitant]
     Active Substance: EPIRUBICIN
     Indication: Product used for unknown indication
     Dosage: 180 MILLIGRAM (90MG/M2), 45 ML VIA PORTACATH

REACTIONS (5)
  - Injury [Not Recovered/Not Resolved]
  - Breast injury [Unknown]
  - Wound [Unknown]
  - Breast pain [Unknown]
  - Drug ineffective [Unknown]
